FAERS Safety Report 16384908 (Version 1)
Quarter: 2019Q2

REPORT INFORMATION
  Report Type: Spontaneous
  Country: FR (occurrence: FR)
  Receive Date: 20190603
  Receipt Date: 20190603
  Transmission Date: 20190711
  Serious: Yes (Other)
  Sender: FDA-Public Use
  Company Number: FR-MYLANLABS-2019M1051389

PATIENT
  Age: 18 Year
  Sex: Female

DRUGS (4)
  1. VALIUM [Suspect]
     Active Substance: DIAZEPAM
     Indication: PRODUCT USED FOR UNKNOWN INDICATION
     Dosage: 1 TABLET IN THE MORNING; 1 TABLET AT LUNCHTIME, 1 TABLET IN THE EVENING AND 1 TABLET IF CRISIS
     Route: 065
  2. TERCIAN                            /00759301/ [Suspect]
     Active Substance: CYAMEMAZINE
     Indication: PRODUCT USED FOR UNKNOWN INDICATION
     Dosage: 0.5 TABLET IN THE MORNING; 0.5 TABLET AT LUNCHTIME AND 1 TABLET IN THE EVENING
     Route: 065
  3. OLANZAPINE. [Suspect]
     Active Substance: OLANZAPINE
     Indication: PRODUCT USED FOR UNKNOWN INDICATION
     Dosage: HALF TABLET IN THE MORNING AND 1 TABLET IN THE EVENING
     Route: 048
  4. PARKINANE [Suspect]
     Active Substance: TRIHEXYPHENIDYL HYDROCHLORIDE
     Indication: PRODUCT USED FOR UNKNOWN INDICATION
     Dosage: 1 CAPSULE IN THE MORNING
     Route: 065

REACTIONS (4)
  - Disinhibition [Not Recovered/Not Resolved]
  - Dysphagia [Not Recovered/Not Resolved]
  - Aggression [Not Recovered/Not Resolved]
  - Impulsive behaviour [Not Recovered/Not Resolved]
